FAERS Safety Report 5393384-1 (Version None)
Quarter: 2007Q3

REPORT INFORMATION
  Report Type: 
  Country: None (occurrence: None)
  Receive Date: 20070723
  Receipt Date: 20070713
  Transmission Date: 20080115
  Serious: Yes (Other)
  Sender: FDA-Public Use
  Company Number: PHEH2007US04954

PATIENT
  Sex: Female

DRUGS (8)
  1. ZELNORM [Suspect]
     Route: 065
  2. FIORICET [Concomitant]
     Dosage: 1-2, Q4H
     Route: 048
     Dates: start: 20070614
  3. IMITREX [Concomitant]
     Dates: start: 20070705
  4. AMBIEN [Concomitant]
     Dosage: 10 MG, QHS
     Route: 048
     Dates: start: 20070614
  5. AMBIEN [Concomitant]
     Dosage: 12.5 MG, QD
     Dates: start: 20070606
  6. EFFEXOR /USA/ [Concomitant]
     Dates: start: 20070614
  7. RESTORIL [Concomitant]
     Indication: INSOMNIA
     Route: 048
  8. PROTONIX [Concomitant]
     Dosage: 40 MG, QD
     Route: 048
     Dates: start: 20070705

REACTIONS (16)
  - CHEST PAIN [None]
  - CRYING [None]
  - DEPRESSED MOOD [None]
  - DEPRESSION [None]
  - DYSKINESIA [None]
  - FATIGUE [None]
  - GASTROOESOPHAGEAL REFLUX DISEASE [None]
  - HOT FLUSH [None]
  - INSOMNIA [None]
  - MICTURITION URGENCY [None]
  - MIGRAINE [None]
  - PELVIC PAIN [None]
  - PERINEAL OPERATION [None]
  - URINARY INCONTINENCE [None]
  - VAGINAL DISCHARGE [None]
  - WHITE BLOOD CELLS URINE POSITIVE [None]
